FAERS Safety Report 6684497-2 (Version None)
Quarter: 2010Q2

REPORT INFORMATION
  Report Type: 
  Country: None (occurrence: None)
  Receive Date: 20100416
  Receipt Date: 20100408
  Transmission Date: 20101027
  Serious: Yes (Hospitalization)
  Sender: FDA-Public Use
  Company Number: DE-ROCHE-694299

PATIENT
  Sex: Male

DRUGS (6)
  1. BEVACIZUMAB [Suspect]
     Indication: COLORECTAL CANCER
     Dosage: FREQUENCY: DAY 1 AND 14, LAST DOSE PRIOR TO SAE 24 MARCH 2010.
     Route: 042
     Dates: start: 20091130
  2. FLUOROURACIL [Suspect]
     Indication: COLORECTAL CANCER
     Dosage: DOSE: 400/600 MG/M2, FREQUENCY: DAY 1, 2, 14 ,15, LAST DOSE PRIOR TO SAE 25 MARCH 2010.
     Route: 042
     Dates: start: 20091130
  3. FOLINIC ACID [Suspect]
     Indication: COLORECTAL CANCER
     Dosage: FREQUENCY: DAY 1, 2, 14, 15, LAST DOSE PRIOR TO SAE 25 MARCH 2010
     Route: 042
     Dates: start: 20091130
  4. OXALIPLATIN [Suspect]
     Indication: COLORECTAL CANCER
     Dosage: FREQUENCY: DAY 1 AND 14, LAST DOSE PRIOR TO SAE 24 MARCH 2010
     Route: 042
     Dates: start: 20091130
  5. ONDANSETRON [Concomitant]
     Dosage: PRIOR TO EACH CHEMOTHERAPY.
  6. DEXAMETHASONE TAB [Concomitant]
     Dosage: PRIOR TO EACH CHEMOTHERAPY.

REACTIONS (1)
  - HYPERTENSIVE ENCEPHALOPATHY [None]
